FAERS Safety Report 16881748 (Version 1)
Quarter: 2019Q4

REPORT INFORMATION
  Report Type: Spontaneous
  Country: US (occurrence: US)
  Receive Date: 20191003
  Receipt Date: 20191003
  Transmission Date: 20200122
  Serious: Yes (Death, Other)
  Sender: FDA-Public Use
  Company Number: US-HIKMA PHARMACEUTICALS USA INC.-US-H14001-19-47114

PATIENT
  Age: 21 Year
  Sex: Male

DRUGS (4)
  1. MERCAPTOPURINE. [Concomitant]
     Active Substance: MERCAPTOPURINE
     Indication: PROPHYLAXIS
     Dosage: ()
     Route: 065
  2. OXALIPLATIN. [Suspect]
     Active Substance: OXALIPLATIN
     Indication: METASTASES TO LIVER
     Dosage: ()CYCLICAL
     Route: 065
     Dates: start: 200810, end: 2008
  3. CALCIUM FOLINATE [Suspect]
     Active Substance: LEUCOVORIN CALCIUM
     Indication: METASTASES TO LIVER
     Dosage: ()CYCLICAL
     Route: 065
     Dates: start: 200810, end: 2008
  4. FLUOROURACIL. [Suspect]
     Active Substance: FLUOROURACIL
     Indication: SMALL INTESTINE ADENOCARCINOMA
     Dosage: ()CYCLICAL
     Route: 065
     Dates: start: 200810, end: 2008

REACTIONS (8)
  - Neuropathy peripheral [Unknown]
  - Leukopenia [Unknown]
  - Malnutrition [Unknown]
  - Fistula [Unknown]
  - Thrombocytopenia [Unknown]
  - Weight decreased [Unknown]
  - Toxicity to various agents [Unknown]
  - Asthenia [Unknown]

NARRATIVE: CASE EVENT DATE: 2008
